FAERS Safety Report 17307128 (Version 1)
Quarter: 2020Q1

REPORT INFORMATION
  Report Type: Spontaneous
  Country: US (occurrence: US)
  Receive Date: 20200122
  Receipt Date: 20200122
  Transmission Date: 20200409
  Serious: Yes (Other)
  Sender: FDA-Public Use
  Company Number: None

PATIENT
  Age: 57 Year
  Sex: Male
  Weight: 107 kg

DRUGS (4)
  1. HYQVIA [Suspect]
     Active Substance: HUMAN IMMUNOGLOBULIN G\HYALURONIDASE RECOMBINANT HUMAN
     Indication: HYPOGAMMAGLOBULINAEMIA
     Dates: start: 20200115, end: 20200115
  2. MEDROL [Concomitant]
     Active Substance: METHYLPREDNISOLONE
     Dates: start: 20200116, end: 20200120
  3. BENADRYL [Concomitant]
     Active Substance: DIPHENHYDRAMINE HYDROCHLORIDE
     Dates: start: 20200118, end: 20200120
  4. HYQVIA [Suspect]
     Active Substance: HUMAN IMMUNOGLOBULIN G\HYALURONIDASE RECOMBINANT HUMAN
     Dates: start: 20200115, end: 20200115

REACTIONS (5)
  - Infusion site swelling [None]
  - Skin tightness [None]
  - Pruritus [None]
  - Myalgia [None]
  - Infusion site pain [None]

NARRATIVE: CASE EVENT DATE: 20200115
